FAERS Safety Report 7226985-6 (Version None)
Quarter: 2011Q1

REPORT INFORMATION
  Report Type: 
  Country: None (occurrence: None)
  Receive Date: 20110114
  Receipt Date: 20110103
  Transmission Date: 20110831
  Serious: Yes (Other)
  Sender: FDA-Public Use
  Company Number: FR-ELI_LILLY_AND_COMPANY-FR201101000318

PATIENT
  Age: 55 Year
  Sex: Female

DRUGS (1)
  1. ZYPREXA [Suspect]
     Indication: DEPRESSION
     Dosage: 5 MG, UNK
     Route: 048

REACTIONS (5)
  - OFF LABEL USE [None]
  - INSOMNIA [None]
  - MIDDLE INSOMNIA [None]
  - HAEMATOCHEZIA [None]
  - WEIGHT INCREASED [None]
